FAERS Safety Report 9470567 (Version 2)
Quarter: 2013Q3

REPORT INFORMATION
  Report Type: Report from Study
  Country: FR (occurrence: FR)
  Receive Date: 20130822
  Receipt Date: 20130829
  Transmission Date: 20140515
  Serious: Yes (Death)
  Sender: FDA-Public Use
  Company Number: FR-PFIZER INC-2013238600

PATIENT
  Age: 51 Year
  Sex: Female

DRUGS (1)
  1. CRIZOTINIB [Suspect]
     Indication: BRONCHIAL CARCINOMA
     Dosage: UNK
     Dates: start: 20130108

REACTIONS (2)
  - Disease progression [Fatal]
  - Bronchial carcinoma [Fatal]
